FAERS Safety Report 9461440 (Version 4)
Quarter: 2014Q1

REPORT INFORMATION
  Report Type: Spontaneous
  Country: US (occurrence: US)
  Receive Date: 20130816
  Receipt Date: 20140214
  Transmission Date: 20141002
  Serious: No
  Sender: FDA-Public Use
  Company Number: US-PFIZER INC-2013237766

PATIENT
  Age: 61 Year
  Sex: Female
  Weight: 86.17 kg

DRUGS (4)
  1. CELEBREX [Suspect]
     Indication: ARTHRALGIA
     Dosage: 200 MG, DAILY
     Dates: start: 201306
  2. CELEBREX [Suspect]
  3. CELEBREX [Suspect]
  4. LORCET [Suspect]
     Indication: ARTHRALGIA
     Dosage: UNK
     Dates: start: 20130607

REACTIONS (1)
  - Drug ineffective [Unknown]
